FAERS Safety Report 4947628-8 (Version None)
Quarter: 2006Q1

REPORT INFORMATION
  Report Type: 
  Country: None (occurrence: None)
  Receive Date: 20060314
  Receipt Date: 20060301
  Transmission Date: 20060701
  Serious: Yes (Hospitalization)
  Sender: FDA-Public Use
  Company Number: 2006029280

PATIENT
  Age: 76 Year
  Sex: Male

DRUGS (4)
  1. LINEZOLID [Suspect]
  2. DIURAL (FUROSEMIDE) [Concomitant]
  3. LIPITOR [Concomitant]
  4. GLUCOPHAGE [Concomitant]

REACTIONS (3)
  - APLASTIC ANAEMIA [None]
  - NAUSEA [None]
  - WEIGHT DECREASED [None]
